FAERS Safety Report 23060709 (Version 2)
Quarter: 2023Q4

REPORT INFORMATION
  Report Type: Report from Study
  Country: CA (occurrence: CA)
  Receive Date: 20231012
  Receipt Date: 20231128
  Transmission Date: 20240109
  Serious: Yes (Other)
  Sender: FDA-Public Use
  Company Number: CA-002147023-NVSC2023CA150137

PATIENT
  Age: 5 Year
  Sex: Male

DRUGS (7)
  1. ILARIS [Suspect]
     Active Substance: CANAKINUMAB
     Indication: Muckle-Wells syndrome
     Dosage: 34 MG, EVERY 8 WEEKS
     Route: 058
     Dates: start: 20230503
  2. ILARIS [Suspect]
     Active Substance: CANAKINUMAB
     Dosage: 49.5 MG, EVERY 8 WEEKS (DOSE INCREASE)
     Route: 065
  3. FLOVENT [Concomitant]
     Active Substance: FLUTICASONE PROPIONATE
     Indication: Product used for unknown indication
     Dosage: 2 DOSAGE FORM, BID
  4. ADVIL [Concomitant]
     Active Substance: IBUPROFEN
     Indication: Product used for unknown indication
     Dosage: UNK UNK, PRN
     Route: 048
  5. TYLENOL [Concomitant]
     Active Substance: ACETAMINOPHEN
     Indication: Product used for unknown indication
     Dosage: UNK, PRN
     Route: 048
  6. VENTOLIN [Concomitant]
     Active Substance: ALBUTEROL SULFATE
     Indication: Product used for unknown indication
     Dosage: UNK, PRN
  7. RUPATADINE FUMARATE [Concomitant]
     Active Substance: RUPATADINE FUMARATE
     Indication: Product used for unknown indication
     Dosage: UNK, BID
     Route: 048

REACTIONS (6)
  - Device related infection [Unknown]
  - Pain [Recovered/Resolved]
  - Rash [Recovered/Resolved]
  - Headache [Recovered/Resolved]
  - Pruritus [Recovered/Resolved]
  - Streptococcal infection [Unknown]

NARRATIVE: CASE EVENT DATE: 20230101
